FAERS Safety Report 7419660-6 (Version None)
Quarter: 2011Q2

REPORT INFORMATION
  Report Type: 
  Country: None (occurrence: None)
  Receive Date: 20110418
  Receipt Date: 20110407
  Transmission Date: 20111010
  Serious: Yes (Other)
  Sender: FDA-Public Use
  Company Number: GB-JNJFOC-20110403330

PATIENT
  Age: 68 Year
  Sex: Female

DRUGS (5)
  1. ACETAMINOPHEN AND CODEINE PHOSPHATE [Concomitant]
     Route: 065
  2. LEVOFLOXACIN [Suspect]
     Indication: PNEUMONIA
     Route: 042
  3. METRONIDAZOLE [Concomitant]
     Route: 065
  4. HALOPERIDOL [Concomitant]
     Route: 065
  5. ALBUTEROL SULFATE AUTOHALER [Concomitant]
     Route: 065

REACTIONS (4)
  - ERYTHEMA MULTIFORME [None]
  - JOINT SWELLING [None]
  - ORAL MUCOSAL ERYTHEMA [None]
  - TONGUE DISORDER [None]
